FAERS Safety Report 11315732 (Version 2)
Quarter: 2015Q3

REPORT INFORMATION
  Report Type: Spontaneous
  Country: US (occurrence: US)
  Receive Date: 20150728
  Receipt Date: 20150813
  Transmission Date: 20151125
  Serious: No
  Sender: FDA-Public Use
  Company Number: US-AMGEN-USASP2015074207

PATIENT
  Age: 42 Year
  Sex: Female

DRUGS (1)
  1. ENBREL [Suspect]
     Active Substance: ETANERCEPT
     Indication: RHEUMATOID ARTHRITIS
     Dosage: 50 MG QW
     Route: 065
     Dates: start: 20150721, end: 20150731

REACTIONS (8)
  - Bloody discharge [Unknown]
  - Pollakiuria [Unknown]
  - Injection site reaction [Unknown]
  - Respiratory tract congestion [Unknown]
  - Injection site pain [Recovered/Resolved]
  - Fatigue [Unknown]
  - Bladder discomfort [Unknown]
  - Activities of daily living impaired [Unknown]

NARRATIVE: CASE EVENT DATE: 2015
